FAERS Safety Report 11102461 (Version 1)
Quarter: 2015Q2

REPORT INFORMATION
  Report Type: Spontaneous
  Country: JP (occurrence: JP)
  Receive Date: 20150511
  Receipt Date: 20150511
  Transmission Date: 20150821
  Serious: Yes (Other)
  Sender: FDA-Public Use
  Company Number: PHHY2015JP053050

PATIENT
  Age: 63 Year
  Sex: Female

DRUGS (2)
  1. CARBOPLATIN. [Suspect]
     Active Substance: CARBOPLATIN
     Indication: OVARIAN GRANULOSA CELL TUMOUR
     Route: 065
  2. PACLITAXEL. [Suspect]
     Active Substance: PACLITAXEL
     Indication: OVARIAN GRANULOSA CELL TUMOUR
     Dosage: 175 MG/M2, UNK
     Route: 065

REACTIONS (3)
  - Chest pain [Recovered/Resolved]
  - Discomfort [Recovered/Resolved]
  - Pneumothorax [Recovered/Resolved]
